FAERS Safety Report 7709075-5 (Version None)
Quarter: 2011Q3

REPORT INFORMATION
  Report Type: 
  Country: None (occurrence: None)
  Receive Date: 20110825
  Receipt Date: 20110817
  Transmission Date: 20111222
  Serious: Yes (Hospitalization)
  Sender: FDA-Public Use
  Company Number: CA-JNJFOC-20110803474

PATIENT
  Sex: Male
  Weight: 80 kg

DRUGS (3)
  1. REMICADE [Suspect]
     Indication: CROHN'S DISEASE
     Route: 042
     Dates: start: 20040101
  2. REMICADE [Suspect]
     Route: 042
     Dates: start: 20090101
  3. REMICADE [Suspect]
     Route: 042
     Dates: start: 20110626, end: 20110817

REACTIONS (2)
  - FISTULA [None]
  - URINARY TRACT INFECTION [None]
